FAERS Safety Report 5639891-5 (Version None)
Quarter: 2008Q1

REPORT INFORMATION
  Report Type: 
  Country: None (occurrence: None)
  Receive Date: 20080227
  Receipt Date: 20080220
  Transmission Date: 20080703
  Serious: Yes (Hospitalization, Other)
  Sender: FDA-Public Use
  Company Number: DE-JNJFOC-20080200719

PATIENT
  Sex: Female
  Weight: 104 kg

DRUGS (6)
  1. RISPERDAL CONSTA [Suspect]
     Indication: SCHIZOAFFECTIVE DISORDER
     Route: 030
  2. INSULIN [Concomitant]
     Indication: DIABETES MELLITUS
  3. RAMIPRIL [Concomitant]
     Indication: HYPERTENSION
  4. ASPIRIN [Concomitant]
     Indication: MACROANGIOPATHY
  5. PANTOZOL [Concomitant]
     Indication: GASTROINTESTINAL DISORDER THERAPY
  6. SIMVASTATIN [Concomitant]
     Indication: HYPERCHOLESTEROLAEMIA

REACTIONS (3)
  - GAIT DISTURBANCE [None]
  - HEMIPARESIS [None]
  - HYPERAESTHESIA [None]
